FAERS Safety Report 16584077 (Version 1)
Quarter: 2019Q3

REPORT INFORMATION
  Report Type: Spontaneous
  Country: FR (occurrence: FR)
  Receive Date: 20190717
  Receipt Date: 20190717
  Transmission Date: 20191004
  Serious: Yes (Hospitalization)
  Sender: FDA-Public Use
  Company Number: FR-ACCORD-138743

PATIENT
  Age: 59 Year
  Sex: Male
  Weight: 87 kg

DRUGS (13)
  1. LANSOPRAZOLE. [Concomitant]
     Active Substance: LANSOPRAZOLE
     Indication: DUODENAL ULCER
     Route: 048
     Dates: start: 20190415, end: 20190502
  2. NEFOPAM [Concomitant]
     Active Substance: NEFOPAM
     Indication: PROCEDURAL PAIN
     Route: 042
     Dates: start: 20190413, end: 20190421
  3. DEBRIDAT [Concomitant]
     Active Substance: TRIMEBUTINE MALEATE
     Indication: GASTROINTESTINAL MOTILITY DISORDER
     Route: 042
     Dates: start: 20190415, end: 20190502
  4. URSODEOXYCHOLATE SODIUM/URSODEOXYCHOLIC ACID [Concomitant]
     Indication: CHOLANGITIS
     Route: 048
     Dates: start: 20190415, end: 20190502
  5. FUROSEMIDE. [Suspect]
     Active Substance: FUROSEMIDE
     Indication: ASCITES
     Route: 042
     Dates: start: 20190425, end: 20190502
  6. MACROGOL/MACROGOL STEARATE [Concomitant]
     Indication: CONSTIPATION
     Route: 048
     Dates: start: 20190415, end: 20190501
  7. VIALEBEX [Concomitant]
     Active Substance: ALBUMIN HUMAN
     Indication: HYPOVOLAEMIA
     Dosage: INCONNUE
     Route: 042
     Dates: start: 20190426, end: 20190429
  8. DIFFU K [Concomitant]
     Active Substance: POTASSIUM CHLORIDE
     Indication: HYPOKALAEMIA
     Route: 048
     Dates: start: 20190415, end: 20190501
  9. SPASFON (PHLOROGLUCINOL;TRIMETHYLPHLOROGLUCINOL) [Concomitant]
     Active Substance: PHLOROGLUCINOL\1,3,5-TRIMETHOXYBENZENE
     Indication: PAIN
     Route: 042
     Dates: start: 20190415, end: 20190502
  10. LOVENOX [Concomitant]
     Active Substance: ENOXAPARIN SODIUM
     Indication: THROMBOSIS PROPHYLAXIS
     Dosage: INCONNUE
     Route: 058
     Dates: start: 20190415, end: 20190502
  11. ONDANSETRON [Concomitant]
     Active Substance: ONDANSETRON
     Indication: PROPHYLAXIS OF NAUSEA AND VOMITING
     Route: 048
     Dates: start: 20190421, end: 20190421
  12. CORDARONE [Concomitant]
     Active Substance: AMIODARONE HYDROCHLORIDE
     Indication: ARRHYTHMIA
     Route: 042
     Dates: start: 20190428, end: 20190429
  13. BISOCE [Concomitant]
     Active Substance: BISOPROLOL
     Indication: CARDIAC FAILURE
     Route: 048
     Dates: start: 20190430, end: 20190502

REACTIONS (1)
  - Acute kidney injury [Recovered/Resolved]

NARRATIVE: CASE EVENT DATE: 20190502
